FAERS Safety Report 6107022-3 (Version None)
Quarter: 2009Q1

REPORT INFORMATION
  Report Type: 
  Country: None (occurrence: None)
  Receive Date: 20090306
  Receipt Date: 20090306
  Transmission Date: 20090719
  Serious: Yes (Death)
  Sender: FDA-Public Use
  Company Number: None

PATIENT
  Sex: Male
  Weight: 111.1313 kg

DRUGS (2)
  1. EFFEXOR XR [Suspect]
     Indication: ANXIETY
     Dosage: 120 MG DAILY
     Dates: start: 20061201
  2. EFFEXOR XR [Suspect]
     Indication: DEPRESSION
     Dosage: 120 MG DAILY
     Dates: start: 20061201

REACTIONS (3)
  - ANGER [None]
  - ASPHYXIA [None]
  - COMPLETED SUICIDE [None]
